FAERS Safety Report 4546496-6 (Version None)
Quarter: 2005Q1

REPORT INFORMATION
  Report Type: 
  Country: None (occurrence: None)
  Receive Date: 20050106
  Receipt Date: 20041109
  Transmission Date: 20050727
  Serious: Yes (Death, Hospitalization)
  Sender: FDA-Public Use
  Company Number: US-GLAXOSMITHKLINE-A0533474A

PATIENT
  Age: 58 Year
  Sex: Male
  Weight: 54.5 kg

DRUGS (1)
  1. PAXIL CR [Suspect]
     Indication: ANXIETY
     Dosage: 12.5MG PER DAY
     Route: 048
     Dates: start: 20030829, end: 20030901

REACTIONS (27)
  - ANOREXIA [None]
  - ANXIETY [None]
  - CLOSTRIDIUM COLITIS [None]
  - COMPLETED SUICIDE [None]
  - DECREASED INTEREST [None]
  - DEPRESSED MOOD [None]
  - DRUG EFFECT DECREASED [None]
  - EARLY MORNING AWAKENING [None]
  - FEELING ABNORMAL [None]
  - GASTROINTESTINAL INFECTION [None]
  - HALLUCINATION, VISUAL [None]
  - HEART RATE INCREASED [None]
  - HEPATIC ENZYME INCREASED [None]
  - HOMICIDAL IDEATION [None]
  - HYPERVIGILANCE [None]
  - MAJOR DEPRESSION [None]
  - MENTAL IMPAIRMENT [None]
  - MORBID THOUGHTS [None]
  - NAUSEA [None]
  - PALPITATIONS [None]
  - SENSORY DISTURBANCE [None]
  - SLEEP DISORDER [None]
  - SUICIDAL IDEATION [None]
  - SUICIDE ATTEMPT [None]
  - URINARY HESITATION [None]
  - URINARY RETENTION [None]
  - WEIGHT DECREASED [None]
